FAERS Safety Report 5282616-6 (Version None)
Quarter: 2007Q1

REPORT INFORMATION
  Report Type: 
  Country: None (occurrence: None)
  Receive Date: 20070331
  Receipt Date: 20070319
  Transmission Date: 20070707
  Serious: Yes (Hospitalization, Other)
  Sender: FDA-Public Use
  Company Number: RU-SHR-RU-2007-006987

PATIENT
  Age: 25 Year
  Sex: Male

DRUGS (6)
  1. BETASERON [Suspect]
     Dosage: 500 MG, EVERY 2D
     Route: 058
     Dates: start: 20060128
  2. BETASERON [Suspect]
     Dosage: 10 MG, EVERY 2D
     Route: 058
     Dates: start: 20060201
  3. BETASERON [Suspect]
     Dosage: .75 MG, EVERY 2D
     Route: 058
     Dates: start: 20060401, end: 20060701
  4. BETASERON [Suspect]
     Dosage: NO TREATMENT
     Dates: start: 20060701, end: 20060925
  5. BETASERON [Suspect]
     Dosage: .5 MG, EVERY 2D
     Route: 058
     Dates: start: 20061001
  6. BETASERON [Suspect]
     Dosage: 1 MG, EVERY 2D
     Route: 058
     Dates: start: 20061001

REACTIONS (5)
  - ASTHENIA [None]
  - HYPERTHERMIA [None]
  - INJECTION SITE NECROSIS [None]
  - MULTIPLE SCLEROSIS [None]
  - SENSATION OF HEAVINESS [None]
